FAERS Safety Report 24377035 (Version 1)
Quarter: 2024Q3

REPORT INFORMATION
  Report Type: Spontaneous
  Country: US (occurrence: US)
  Receive Date: 20240930
  Receipt Date: 20240930
  Transmission Date: 20241016
  Serious: Yes (Hospitalization, Other)
  Sender: MERCK
  Company Number: US-009507513-2409USA009260

PATIENT
  Age: 70 Year
  Sex: Female

DRUGS (2)
  1. CUBICIN [Suspect]
     Active Substance: DAPTOMYCIN
     Indication: Osteomyelitis
     Dosage: UNK
  2. CEFEPIME [Suspect]
     Active Substance: CEFEPIME HYDROCHLORIDE
     Indication: Osteomyelitis

REACTIONS (2)
  - Eosinophilic pneumonia [Unknown]
  - Acute respiratory failure [Unknown]
